FAERS Safety Report 14998599 (Version 2)
Quarter: 2018Q2

REPORT INFORMATION
  Report Type: Report from Study
  Country: GB (occurrence: GB)
  Receive Date: 20180612
  Receipt Date: 20180627
  Transmission Date: 20180711
  Serious: Yes (Other)
  Sender: FDA-Public Use
  Company Number: PHHY2018GB015236

PATIENT
  Age: 69 Year
  Sex: Female

DRUGS (1)
  1. ERELZI [Suspect]
     Active Substance: ETANERCEPT-SZZS
     Indication: RHEUMATOID ARTHRITIS
     Dosage: 50 MG, QW
     Route: 058
     Dates: start: 20180405

REACTIONS (4)
  - Swelling [Recovering/Resolving]
  - Asthenia [Recovering/Resolving]
  - Chills [Recovering/Resolving]
  - Limb mass [Recovering/Resolving]

NARRATIVE: CASE EVENT DATE: 20180526
